FAERS Safety Report 15232157 (Version 1)
Quarter: 2018Q3

REPORT INFORMATION
  Report Type: Spontaneous
  Country: US (occurrence: US)
  Receive Date: 20180802
  Receipt Date: 20180802
  Transmission Date: 20181010
  Serious: Yes (Hospitalization)
  Sender: FDA-Public Use
  Company Number: US-GLENMARK PHARMACEUTICALS-2018GMK036801

PATIENT
  Age: 50 Year
  Sex: Female

DRUGS (2)
  1. OSELTAMIVIR [Concomitant]
     Active Substance: OSELTAMIVIR
     Indication: INFLUENZA
     Dosage: UNK
     Route: 065
  2. THEOPHYLLINE [Suspect]
     Active Substance: THEOPHYLLINE ANHYDROUS
     Indication: PRODUCT USED FOR UNKNOWN INDICATION
     Dosage: 200 MG, BID
     Route: 048

REACTIONS (2)
  - Drug clearance decreased [Unknown]
  - Toxicity to various agents [Recovered/Resolved]
